FAERS Safety Report 8322824-0 (Version None)
Quarter: 2012Q2

REPORT INFORMATION
  Report Type: 
  Country: None (occurrence: None)
  Receive Date: 20120430
  Receipt Date: 20120420
  Transmission Date: 20120825
  Serious: Yes (Life-Threatening)
  Sender: FDA-Public Use
  Company Number: US-ROCHE-1045526

PATIENT
  Sex: Female
  Weight: 84.444 kg

DRUGS (4)
  1. HERCEPTIN [Suspect]
     Indication: BREAST CANCER
     Route: 042
     Dates: end: 20120313
  2. CARBOPLATIN [Concomitant]
     Indication: BREAST CANCER METASTATIC
     Route: 042
     Dates: start: 20110201, end: 20110201
  3. REFLUXIN ANTACID PRODUCT NOS [Concomitant]
     Indication: GASTROOESOPHAGEAL REFLUX DISEASE
     Route: 048
  4. DOCETAXEL [Concomitant]
     Indication: BREAST CANCER METASTATIC
     Route: 042
     Dates: start: 20110201, end: 20110201

REACTIONS (6)
  - DYSPNOEA [None]
  - ERYTHEMA [None]
  - HEADACHE [None]
  - DYSPHONIA [None]
  - RHINORRHOEA [None]
  - INFUSION RELATED REACTION [None]
